FAERS Safety Report 10794892 (Version 2)
Quarter: 2015Q1

REPORT INFORMATION
  Report Type: Report from Study
  Country: BR (occurrence: BR)
  Receive Date: 20150213
  Receipt Date: 20150220
  Transmission Date: 20150721
  Serious: Yes (Death)
  Sender: FDA-Public Use
  Company Number: PHHY2015BR017631

PATIENT
  Age: 88 Year
  Sex: Female
  Weight: 52 kg

DRUGS (1)
  1. DIOVAN HCT [Suspect]
     Active Substance: HYDROCHLOROTHIAZIDE\VALSARTAN
     Indication: HYPERTENSION
     Dosage: 1 DF (160/25 MG), QD (IN THE MORNING)
     Route: 048

REACTIONS (6)
  - Parkinson^s disease [Fatal]
  - Visual impairment [Fatal]
  - Nervous system disorder [Fatal]
  - Seizure [Fatal]
  - Malaise [Fatal]
  - Senile dementia [Fatal]

NARRATIVE: CASE EVENT DATE: 2013
